FAERS Safety Report 7796152-6 (Version None)
Quarter: 2011Q4

REPORT INFORMATION
  Report Type: 
  Country: None (occurrence: None)
  Receive Date: 20111004
  Receipt Date: 20110926
  Transmission Date: 20120403
  Serious: Yes (Death, Hospitalization, Other)
  Sender: FDA-Public Use
  Company Number: US-CELGENEUS-163-21880-11080043

PATIENT
  Sex: Male

DRUGS (13)
  1. REVLIMID [Suspect]
     Dosage: 10 MILLIGRAM
     Route: 048
     Dates: start: 20090514
  2. REVLIMID [Suspect]
     Dosage: 5 MILLIGRAM
     Dates: start: 20110726
  3. OMEPRAZOLE [Concomitant]
     Dosage: 20 MILLIGRAM
     Route: 048
  4. REVLIMID [Suspect]
     Dosage: 15 MILLIGRAM
     Route: 048
     Dates: start: 20090406
  5. LOPRESSOR [Concomitant]
     Indication: BLOOD PRESSURE
  6. OXYCONTIN [Concomitant]
     Indication: PAIN
     Dosage: 40 MILLIGRAM
     Route: 048
  7. REVLIMID [Suspect]
     Dosage: 10 MILLIGRAM
     Dates: start: 20110622
  8. FLOMAX [Concomitant]
     Dosage: .4 MILLIGRAM
     Route: 048
  9. REVLIMID [Suspect]
     Indication: MULTIPLE MYELOMA
     Dosage: 25 MILLIGRAM
     Route: 048
     Dates: start: 20090223, end: 20090101
  10. ALLOPURINOL [Concomitant]
     Indication: PROPHYLAXIS
     Dosage: 300 MILLIGRAM
     Route: 048
  11. LOPRESSOR [Concomitant]
     Dosage: 25 MILLIGRAM
     Route: 065
  12. ASPIRIN [Concomitant]
     Indication: PROPHYLAXIS
     Dosage: 325 MILLIGRAM
     Route: 048
  13. NEURONTIN [Concomitant]
     Dosage: 300 MILLIGRAM
     Route: 048

REACTIONS (4)
  - NEUTROPHIL COUNT DECREASED [None]
  - MULTIPLE MYELOMA [None]
  - PNEUMONIA BACTERIAL [None]
  - PANCYTOPENIA [None]
